FAERS Safety Report 9241071 (Version 1)
Quarter: 2013Q2

REPORT INFORMATION
  Report Type: Spontaneous
  Country: US (occurrence: None)
  Receive Date: 20130418
  Receipt Date: 20130418
  Transmission Date: 20140414
  Serious: Yes (Disabling)
  Sender: FDA-Public Use
  Company Number: None

PATIENT
  Age: 31 Year
  Sex: Female
  Weight: 90.72 kg

DRUGS (2)
  1. LEVAQUIN [Suspect]
     Indication: SINUSITIS
     Dates: start: 202101
  2. LEVAQUIN [Suspect]
     Indication: POST PROCEDURAL INFECTION
     Dates: start: 202101

REACTIONS (7)
  - Impaired work ability [None]
  - Tendon pain [None]
  - Arthralgia [None]
  - Arthralgia [None]
  - Arthralgia [None]
  - Musculoskeletal pain [None]
  - Arthralgia [None]
